FAERS Safety Report 8608908-8 (Version None)
Quarter: 2012Q3

REPORT INFORMATION
  Report Type: 
  Country: None (occurrence: None)
  Receive Date: 20120809
  Receipt Date: 20120809
  Transmission Date: 20120928
  Serious: No
  Sender: FDA-Public Use
  Company Number: None

PATIENT
  Sex: Male

DRUGS (1)
  1. ENBREL [Suspect]
     Indication: JOINT ANKYLOSIS
     Dosage: 50 MG WEEKLY SQ
     Route: 058
     Dates: start: 20120724

REACTIONS (1)
  - LOSS OF CONSCIOUSNESS [None]
